FAERS Safety Report 9596702 (Version 1)
Quarter: 2013Q4

REPORT INFORMATION
  Report Type: Spontaneous
  Country: FR (occurrence: FR)
  Receive Date: 20131004
  Receipt Date: 20131004
  Transmission Date: 20140711
  Serious: Yes (Hospitalization)
  Sender: FDA-Public Use
  Company Number: FR-VIIV HEALTHCARE LIMITED-B0904589A

PATIENT
  Age: 26 Year
  Sex: Female
  Weight: 45 kg

DRUGS (3)
  1. KIVEXA [Suspect]
     Indication: HIV INFECTION
     Route: 065
     Dates: start: 201306, end: 201306
  2. REYATAZ [Concomitant]
     Indication: HIV INFECTION
     Route: 065
     Dates: start: 201306
  3. NORVIR [Concomitant]
     Indication: HIV INFECTION
     Route: 065
     Dates: start: 201306

REACTIONS (6)
  - Sepsis [Unknown]
  - Pyrexia [Unknown]
  - Malaise [Unknown]
  - Cytomegalovirus test positive [Recovered/Resolved]
  - Blood pressure decreased [Unknown]
  - Chills [Unknown]
